FAERS Safety Report 6182175-X (Version None)
Quarter: 2009Q2

REPORT INFORMATION
  Report Type: 
  Country: None (occurrence: None)
  Receive Date: 20090505
  Receipt Date: 20090505
  Transmission Date: 20091009
  Serious: Yes (Other)
  Sender: FDA-Public Use
  Company Number: None

PATIENT
  Age: 59 Year
  Sex: Female
  Weight: 58.9676 kg

DRUGS (2)
  1. METRONIDAZOLE [Suspect]
     Indication: COLITIS
     Dosage: 500 MG 3 TIMES DAILY PO
     Route: 048
     Dates: start: 20090428, end: 20090512
  2. FLAGYL [Concomitant]

REACTIONS (4)
  - COLITIS [None]
  - DIZZINESS [None]
  - MIGRAINE [None]
  - SLEEP DISORDER [None]
